FAERS Safety Report 14492678 (Version 1)
Quarter: 2018Q1

REPORT INFORMATION
  Report Type: Spontaneous
  Country: US (occurrence: US)
  Receive Date: 20180206
  Receipt Date: 20180206
  Transmission Date: 20180509
  Serious: No
  Sender: FDA-Public Use
  Company Number: US-JNJFOC-20180137504

PATIENT
  Age: 67 Year
  Sex: Female
  Weight: 49.9 kg

DRUGS (3)
  1. ZYRTEC [Suspect]
     Active Substance: CETIRIZINE HYDROCHLORIDE
     Indication: COUGH
     Dosage: IN THE MORNING AND ONE AT NIGHT
     Route: 065
     Dates: start: 20180125
  2. ZYRTEC [Suspect]
     Active Substance: CETIRIZINE HYDROCHLORIDE
     Indication: INFLUENZA
     Dosage: IN THE MORNING AND ONE AT NIGHT
     Route: 065
     Dates: start: 20180125
  3. ZYRTEC [Suspect]
     Active Substance: CETIRIZINE HYDROCHLORIDE
     Indication: SINUS CONGESTION
     Dosage: IN THE MORNING AND ONE AT NIGHT
     Route: 065
     Dates: start: 20180125

REACTIONS (4)
  - Drug administration error [Unknown]
  - Overdose [Unknown]
  - Product use in unapproved indication [Unknown]
  - Therapeutic response unexpected [Unknown]

NARRATIVE: CASE EVENT DATE: 20180125
